FAERS Safety Report 6765923-7 (Version None)
Quarter: 2010Q2

REPORT INFORMATION
  Report Type: 
  Country: None (occurrence: None)
  Receive Date: 20100609
  Receipt Date: 20100602
  Transmission Date: 20101027
  Serious: Yes (Hospitalization)
  Sender: FDA-Public Use
  Company Number: UTC-001130

PATIENT
  Age: 73 Year
  Sex: Female
  Weight: 54 kg

DRUGS (12)
  1. TYVASO [Suspect]
     Indication: PULMONARY HYPERTENSION
     Dosage: (144 MCG, 1 D), INHALATION
     Route: 055
     Dates: start: 20100428, end: 20100525
  2. FOLIC ACID (FOLIC ACID)(TABLETS) [Concomitant]
  3. LASIX [Concomitant]
  4. TRAMADOL HCL (TRAMADOL HYDROCHLORIDE) (TABLETS) [Concomitant]
  5. NABUMETONE (NABUMETONE) (TABLETS) [Concomitant]
  6. THALOMID [Concomitant]
  7. OMEPRAZOLE [Concomitant]
  8. LETAIRIS (AMBRISENTAN) [Concomitant]
  9. ALLOPURINOL [Concomitant]
  10. AMARYL [Concomitant]
  11. PREDNISONE [Concomitant]
  12. ASPIRIN [Concomitant]

REACTIONS (5)
  - BURNING SENSATION [None]
  - DYSPNOEA [None]
  - NASAL DISORDER [None]
  - OEDEMA [None]
  - TONGUE DISORDER [None]
